FAERS Safety Report 25670428 (Version 1)
Quarter: 2025Q3

REPORT INFORMATION
  Report Type: Spontaneous
  Country: US (occurrence: None)
  Receive Date: 20250811
  Receipt Date: 20250811
  Transmission Date: 20251020
  Serious: Yes (Life-Threatening)
  Sender: FDA-CTU
  Company Number: None

PATIENT
  Age: 63 Year
  Sex: Male

DRUGS (11)
  1. MYFORTIC [Suspect]
     Active Substance: MYCOPHENOLATE SODIUM
     Indication: Renal transplant
     Dosage: FREQUENCY : TWICE A DAY;?
     Route: 048
     Dates: start: 20250719, end: 20250721
  2. FAMOTIDINE [Concomitant]
     Active Substance: FAMOTIDINE
  3. LINZESS [Concomitant]
     Active Substance: LINACLOTIDE
  4. mehtyprednisolone [Concomitant]
  5. hydralizine [Concomitant]
  6. CYCLOBENZAPRINE [Concomitant]
     Active Substance: CYCLOBENZAPRINE
  7. ACETAMINOPHEN\OXYCODONE HYDROCHLORIDE [Concomitant]
     Active Substance: ACETAMINOPHEN\OXYCODONE HYDROCHLORIDE
  8. POTASSIUM CHLORIDE [Concomitant]
     Active Substance: POTASSIUM CHLORIDE
  9. FLUCONAZOLE [Concomitant]
     Active Substance: FLUCONAZOLE
  10. MAGNESIUM OXIDE [Concomitant]
     Active Substance: MAGNESIUM OXIDE
  11. MOUNJARO [Concomitant]
     Active Substance: TIRZEPATIDE

REACTIONS (4)
  - Hypersensitivity [None]
  - Night blindness [None]
  - Pain [None]
  - Drug hypersensitivity [None]

NARRATIVE: CASE EVENT DATE: 20250719
